FAERS Safety Report 9645285 (Version 5)
Quarter: 2014Q1

REPORT INFORMATION
  Report Type: Report from Study
  Country: BE (occurrence: BE)
  Receive Date: 20131025
  Receipt Date: 20140327
  Transmission Date: 20141002
  Serious: No
  Sender: FDA-Public Use
  Company Number: PHHY2013BE036567

PATIENT
  Age: 39 Year
  Sex: Female

DRUGS (10)
  1. GILENYA [Suspect]
     Indication: MULTIPLE SCLEROSIS
     Dosage: 0.5 MG, QD
     Route: 048
     Dates: start: 20130114, end: 201309
  2. LEPONEX [Suspect]
  3. DEANXIT [Concomitant]
  4. SEROQUEL [Concomitant]
  5. MANIPREX [Concomitant]
  6. FLUOXETINE [Concomitant]
  7. NACL [Concomitant]
     Dosage: 1 G, QD
  8. CITALOPRAM [Concomitant]
  9. SULPIRIDE [Concomitant]
  10. TRADONAL [Concomitant]
     Dosage: 50 MG, PRN

REACTIONS (13)
  - Weight increased [Not Recovered/Not Resolved]
  - Multiple sclerosis relapse [Unknown]
  - Urinary incontinence [Unknown]
  - Muscular weakness [Unknown]
  - Central nervous system lesion [Unknown]
  - Increased appetite [Not Recovered/Not Resolved]
  - Stress [Unknown]
  - Personality change [Unknown]
  - Insomnia [Unknown]
  - Hot flush [Unknown]
  - Headache [Unknown]
  - Depression [Unknown]
  - Asthenia [Unknown]
